FAERS Safety Report 7995927-8 (Version None)
Quarter: 2011Q4

REPORT INFORMATION
  Report Type: 
  Country: None (occurrence: None)
  Receive Date: 20111220
  Receipt Date: 20111216
  Transmission Date: 20120403
  Serious: Yes (Other)
  Sender: FDA-Public Use
  Company Number: US-ABBOTT-11P-163-0858613-00

PATIENT
  Weight: 113.5 kg

DRUGS (8)
  1. HUMIRA [Suspect]
     Indication: PSORIASIS
     Dates: start: 20070101, end: 20110501
  2. CRESTOR [Concomitant]
     Indication: BLOOD CHOLESTEROL
  3. ISOSORBIDE DINITRATE [Concomitant]
     Indication: ANGINA PECTORIS
  4. ASPIRIN [Concomitant]
     Indication: PRODUCT USED FOR UNKNOWN INDICATION
  5. FOLBEE [Concomitant]
     Indication: VITAMIN SUPPLEMENTATION
     Dosage: DAILY
  6. FLOMAX [Concomitant]
     Indication: PROSTATIC DISORDER
  7. HUMIRA [Suspect]
     Indication: PSORIATIC ARTHROPATHY
     Dates: start: 20110501
  8. ATENOLOL [Concomitant]
     Indication: HYPERTENSION

REACTIONS (4)
  - PSORIASIS [None]
  - ATRIAL FIBRILLATION [None]
  - CHEST PAIN [None]
  - CORONARY ARTERY OCCLUSION [None]
